FAERS Safety Report 9128414 (Version 1)
Quarter: 2013Q1

REPORT INFORMATION
  Report Type: Spontaneous
  Country: US (occurrence: US)
  Receive Date: 20130228
  Receipt Date: 20130228
  Transmission Date: 20140127
  Serious: No
  Sender: FDA-Public Use
  Company Number: US-GLAXOSMITHKLINE-A0980817A

PATIENT
  Age: 46 Year
  Sex: Female

DRUGS (11)
  1. IMITREX [Suspect]
     Indication: MIGRAINE
     Dosage: 4MG AS REQUIRED
     Route: 058
  2. SUMATRIPTAN SUCCINATE [Suspect]
     Indication: MIGRAINE
     Dosage: 6MG AS REQUIRED
     Route: 058
  3. ALPRAZOLAM [Concomitant]
  4. FENTANYL [Concomitant]
  5. OXYCONTIN [Concomitant]
  6. LEVOTHYROXINE [Concomitant]
  7. BACLOFEN [Concomitant]
  8. VENLAFAXINE [Concomitant]
  9. OMEPRAZOLE [Concomitant]
  10. TOPIRAMATE [Concomitant]
  11. CLONAZEPAM [Concomitant]

REACTIONS (3)
  - Blood pressure decreased [Recovered/Resolved]
  - Hypopnoea [Recovered/Resolved]
  - Drug ineffective [Unknown]
